FAERS Safety Report 18169545 (Version 2)
Quarter: 2021Q1

REPORT INFORMATION
  Report Type: Spontaneous
  Country: US (occurrence: US)
  Receive Date: 20200819
  Receipt Date: 20210120
  Transmission Date: 20210419
  Serious: Yes (Other)
  Sender: FDA-Public Use
  Company Number: US-BAYER-2020-172819

PATIENT
  Age: 47 Year
  Sex: Female
  Weight: 94.79 kg

DRUGS (5)
  1. MIRENA [Suspect]
     Active Substance: LEVONORGESTREL
     Indication: CONTRACEPTION
     Dosage: 20  ?G PER DAY, CONTINUOUSLY
     Route: 015
     Dates: start: 20200710
  2. LYRICA [Concomitant]
     Active Substance: PREGABALIN
     Dosage: 50 MG
     Route: 048
  3. DILTIAZEM. [Concomitant]
     Active Substance: DILTIAZEM
     Dosage: 60 MG
     Route: 048
  4. MIRENA [Suspect]
     Active Substance: LEVONORGESTREL
     Indication: CONTRACEPTION
     Dosage: 20  ?G PER DAY, CONTINUOUSLY
     Route: 015
     Dates: start: 20140613, end: 20200710
  5. BETADINE ALCOOLICO [Concomitant]
     Active Substance: POVIDONE-IODINE

REACTIONS (2)
  - Amenorrhoea [None]
  - Device dislocation [Recovered/Resolved]

NARRATIVE: CASE EVENT DATE: 20200818
